FAERS Safety Report 26156894 (Version 2)
Quarter: 2025Q4

REPORT INFORMATION
  Report Type: Spontaneous
  Country: EU (occurrence: EU)
  Receive Date: 20251215
  Receipt Date: 20251218
  Transmission Date: 20260117
  Serious: Yes (Hospitalization)
  Sender: Haleon PLC
  Company Number: EU-SANDOZ-SDZ2025DE092787

PATIENT
  Sex: Female

DRUGS (7)
  1. DICLOFENAC [Suspect]
     Active Substance: DICLOFENAC
     Indication: Product used for unknown indication
     Dosage: 75 MG?FORM + ROUTE: UNKNOWN
  2. ETORICOXIB [Suspect]
     Active Substance: ETORICOXIB
     Indication: Product used for unknown indication
     Dosage: 90 MG, FIRST ADMIN DATE: 2025-08-01?FORM + ROUTE: UNKNOWN
  3. ETORICOXIB [Suspect]
     Active Substance: ETORICOXIB
     Dosage: 90 MG, FIRST ADMIN DATE: 2021-03-22?FORM + ROUTE: UNKNOWN
  4. ETORICOXIB [Suspect]
     Active Substance: ETORICOXIB
     Dosage: 90 MG, FIRST ADMIN DATE: 2021-05-15?FORM + ROUTE: UNKNOWN
  5. ETORICOXIB [Suspect]
     Active Substance: ETORICOXIB
     Dosage: 90 MG, FIRST ADMIN DATE: 2021-11-05, DURATION: 915 DAYS?FORM + ROUTE: UNKNOWN
  6. ETORICOXIB [Suspect]
     Active Substance: ETORICOXIB
     Dosage: 90 MG,?FORM + ROUTE: UNKNOWN
     Dates: start: 20240515, end: 20250301
  7. ETORICOXIB [Suspect]
     Active Substance: ETORICOXIB
     Dosage: 90 MG, FIRST ADMIN DATE: 2020-12-29?FORM + ROUTE: UNKNOWN

REACTIONS (1)
  - Ovarian cyst [Unknown]

NARRATIVE: CASE EVENT DATE: 20240515
